FAERS Safety Report 19293777 (Version 1)
Quarter: 2021Q2

REPORT INFORMATION
  Report Type: Spontaneous
  Country: US (occurrence: US)
  Receive Date: 20210524
  Receipt Date: 20210524
  Transmission Date: 20210717
  Serious: Yes (Hospitalization)
  Sender: FDA-Public Use
  Company Number: None

PATIENT
  Age: 51 Year
  Sex: Female
  Weight: 131.85 kg

DRUGS (1)
  1. CASIRIVIMAB WITH IMDEVIMAB [Suspect]
     Active Substance: CASIRIVIMAB\IMDEVIMAB
     Indication: COVID-19
     Dosage: ?          OTHER FREQUENCY:ONCE;?
     Route: 041
     Dates: start: 20210521, end: 20210521

REACTIONS (2)
  - Acute respiratory failure [None]
  - Oxygen saturation increased [None]

NARRATIVE: CASE EVENT DATE: 20210521
